FAERS Safety Report 13761953 (Version 3)
Quarter: 2017Q3

REPORT INFORMATION
  Report Type: Spontaneous
  Country: US (occurrence: US)
  Receive Date: 20170718
  Receipt Date: 20170803
  Transmission Date: 20171127
  Serious: Yes (Hospitalization, Other)
  Sender: FDA-Public Use
  Company Number: US-AEGERION PHARMACEUTICAL, INC-AEGR003163

PATIENT
  Age: 46 Year
  Sex: Female
  Weight: 87.75 kg

DRUGS (31)
  1. MYALEPT [Suspect]
     Active Substance: METRELEPTIN
     Dosage: 10 MG, QOD
     Route: 058
     Dates: start: 201705
  2. TRIAMTERENE. [Concomitant]
     Active Substance: TRIAMTERENE
     Indication: PRODUCT USED FOR UNKNOWN INDICATION
  3. LOTENSIN [Concomitant]
     Active Substance: BENAZEPRIL HYDROCHLORIDE
     Indication: PRODUCT USED FOR UNKNOWN INDICATION
     Dosage: 40 MG, QD
     Route: 048
  4. ROXICODONE [Concomitant]
     Active Substance: OXYCODONE HYDROCHLORIDE
     Indication: PAIN
     Dosage: 5 MG, QID AS NEEDED
     Route: 048
     Dates: start: 20170502, end: 20170512
  5. XANAX [Concomitant]
     Active Substance: ALPRAZOLAM
     Indication: ANXIETY
     Dosage: .25 MG, BID AS NEEDED
     Route: 048
     Dates: start: 20170502, end: 20170507
  6. EPIPEN [Concomitant]
     Active Substance: EPINEPHRINE
     Indication: PRODUCT USED FOR UNKNOWN INDICATION
     Dosage: 0.3 MG/0.3 ML ATLN AS NEEDED
     Dates: start: 20160907
  7. PROMETHAZINE HCL [Concomitant]
     Active Substance: PROMETHAZINE HYDROCHLORIDE
     Dosage: 25 MG, EVERY 6 HOURS AS NEEDED
     Route: 048
     Dates: start: 20170502
  8. TOBREX [Concomitant]
     Active Substance: TOBRAMYCIN
     Indication: PRODUCT USED FOR UNKNOWN INDICATION
     Dosage: 0.3 %, UNK
     Route: 047
     Dates: start: 20170208, end: 20170512
  9. DESYREL [Concomitant]
     Active Substance: TRAZODONE HYDROCHLORIDE
     Indication: PRODUCT USED FOR UNKNOWN INDICATION
     Dosage: 100 MG, NIGHTLY
     Route: 048
  10. MYALEPT [Suspect]
     Active Substance: METRELEPTIN
     Indication: CONGENITAL GENERALISED LIPODYSTROPHY
     Dosage: UNK
     Route: 058
     Dates: start: 20150611
  11. NEURONTIN [Concomitant]
     Active Substance: GABAPENTIN
     Indication: PRODUCT USED FOR UNKNOWN INDICATION
     Dosage: 600 MG QAM AND 900 MG QHS
     Dates: start: 20160219
  12. COLACE [Concomitant]
     Active Substance: DOCUSATE SODIUM
     Indication: PRODUCT USED FOR UNKNOWN INDICATION
     Dosage: 100 MG, QD FOR 10 DAYS
     Route: 048
     Dates: start: 20170502, end: 20170512
  13. PROMETHAZINE HCL [Concomitant]
     Active Substance: PROMETHAZINE HYDROCHLORIDE
     Indication: NAUSEA
     Dosage: 25 MG, EVERY 4HRS AS NEEDED
     Route: 048
     Dates: start: 20170502, end: 20170509
  14. ULTRAM [Concomitant]
     Active Substance: TRAMADOL HYDROCHLORIDE
     Indication: PAIN
     Dosage: 50 MG, QID
  15. MYALEPT [Suspect]
     Active Substance: METRELEPTIN
     Dosage: 5 MG, QD
     Route: 058
     Dates: start: 2017
  16. MYALEPT [Suspect]
     Active Substance: METRELEPTIN
     Dosage: 5 MG, BID
     Route: 058
     Dates: start: 20170627, end: 20170703
  17. DURAGESIC [Concomitant]
     Active Substance: FENTANYL
     Indication: PRODUCT USED FOR UNKNOWN INDICATION
     Dosage: 25 MCG/HR, 1 PATCH EVERY 3RD DAY
     Route: 062
     Dates: start: 20170502, end: 20170512
  18. PROTONIX [Concomitant]
     Active Substance: PANTOPRAZOLE SODIUM
     Indication: PRODUCT USED FOR UNKNOWN INDICATION
     Dosage: 40 MG, BID BEFORE MEALS
     Route: 048
     Dates: start: 20170502
  19. MYALEPT [Suspect]
     Active Substance: METRELEPTIN
     Dosage: 10 MG, QD
     Route: 058
     Dates: end: 201610
  20. ADDERALL XR [Concomitant]
     Active Substance: AMPHETAMINE ASPARTATE\AMPHETAMINE SULFATE\DEXTROAMPHETAMINE SACCHARATE\DEXTROAMPHETAMINE SULFATE
     Indication: PRODUCT USED FOR UNKNOWN INDICATION
     Dosage: 40 MG, QD
     Route: 048
     Dates: start: 20150910
  21. FLEXERIL [Concomitant]
     Active Substance: CYCLOBENZAPRINE HYDROCHLORIDE
     Indication: PRODUCT USED FOR UNKNOWN INDICATION
     Dosage: 10 MG, AS NEEDED
     Dates: start: 20140819
  22. HUMULIN R U-500 [Concomitant]
     Active Substance: INSULIN HUMAN
     Indication: PRODUCT USED FOR UNKNOWN INDICATION
     Dosage: 150 UNITS, INTO THE SKIN DAILY
     Dates: start: 20170110
  23. DYAZIDE [Concomitant]
     Active Substance: HYDROCHLOROTHIAZIDE\TRIAMTERENE
     Indication: PRODUCT USED FOR UNKNOWN INDICATION
     Dosage: 37.5-25 MG
     Route: 048
  24. MYALEPT [Suspect]
     Active Substance: METRELEPTIN
     Dosage: 10 MG, QD, IN 2 SITES
     Route: 058
     Dates: start: 201612, end: 2017
  25. MYALEPT [Suspect]
     Active Substance: METRELEPTIN
     Dosage: 5 MG, QOD
     Route: 058
     Dates: start: 2017
  26. ROXICODONE [Concomitant]
     Active Substance: OXYCODONE HYDROCHLORIDE
     Dosage: 5 MG, EVERY 4 HOURS AS NEEDED
     Route: 048
     Dates: start: 20170629, end: 20170709
  27. HUMIRA [Concomitant]
     Active Substance: ADALIMUMAB
     Indication: PRODUCT USED FOR UNKNOWN INDICATION
     Dosage: 40 MG/0.8 ML, ONCE EVERY TWO WEEKS
     Route: 058
  28. LISINOPRIL. [Concomitant]
     Active Substance: LISINOPRIL
     Indication: PRODUCT USED FOR UNKNOWN INDICATION
  29. MYCOSTATIN [Concomitant]
     Active Substance: NYSTATIN
     Indication: PRODUCT USED FOR UNKNOWN INDICATION
     Dosage: UNK, BID
     Route: 061
     Dates: start: 20160616, end: 20170616
  30. MIRALAX [Concomitant]
     Active Substance: POLYETHYLENE GLYCOL 3350
     Indication: PRODUCT USED FOR UNKNOWN INDICATION
     Dosage: 17 G, BID FOR 3 DAYS
     Route: 048
     Dates: start: 20170502, end: 20170505
  31. LOVENOX [Concomitant]
     Active Substance: ENOXAPARIN SODIUM
     Indication: PRODUCT USED FOR UNKNOWN INDICATION
     Dosage: 0.3 MLS EVERY 12 HOURS
     Dates: start: 20170629, end: 20170707

REACTIONS (25)
  - Abdominal pain upper [Recovered/Resolved]
  - Dry mouth [Recovered/Resolved]
  - Feeling abnormal [Recovered/Resolved]
  - Pancreatic cyst [Recovered/Resolved]
  - Therapy cessation [Unknown]
  - Blood viscosity abnormal [Recovered/Resolved]
  - Red blood cell spherocytes present [Recovered/Resolved]
  - White blood cell count increased [Recovered/Resolved]
  - Pancreatitis relapsing [Recovered/Resolved]
  - Constipation [Recovered/Resolved]
  - Dry skin [Recovered/Resolved]
  - Migraine [Recovered/Resolved]
  - Dyspnoea [Recovered/Resolved]
  - Hypercalcaemia [Recovered/Resolved]
  - Vitamin D deficiency [Recovered/Resolved]
  - Blood cholesterol increased [Recovered/Resolved]
  - Drug intolerance [Unknown]
  - Nausea [Recovered/Resolved]
  - Gastritis [Recovered/Resolved]
  - Adrenal adenoma [Recovered/Resolved]
  - Blood triglycerides increased [Recovered/Resolved]
  - Iron deficiency anaemia [Recovered/Resolved]
  - Dehydration [Recovered/Resolved]
  - Hepatic steatosis [Recovered/Resolved]
  - Blood glucose increased [Recovered/Resolved]

NARRATIVE: CASE EVENT DATE: 2017
